FAERS Safety Report 8788005 (Version 2)
Quarter: 2012Q4

REPORT INFORMATION
  Report Type: 
  Country: US (occurrence: US)
  Receive Date: 20120914
  Receipt Date: 20121116
  Transmission Date: 20130627
  Serious: Yes (Death)
  Sender: FDA-Public Use
  Company Number: US-ROCHE-1123075

PATIENT
  Sex: Male

DRUGS (5)
  1. AVASTIN [Suspect]
     Indication: NON-SMALL CELL LUNG CANCER
     Route: 042
     Dates: start: 20060323
  2. AVASTIN [Suspect]
     Indication: LUNG NEOPLASM MALIGNANT
  3. AVASTIN [Suspect]
     Indication: NON-SMALL CELL LUNG CANCER
  4. CARBOPLATIN [Concomitant]
     Route: 065
     Dates: start: 20060323
  5. TAXOL [Concomitant]
     Route: 065
     Dates: start: 20060323

REACTIONS (1)
  - Death [Fatal]
